FAERS Safety Report 15005469 (Version 1)
Quarter: 2018Q2

REPORT INFORMATION
  Report Type: Report from Study
  Country: IT (occurrence: IT)
  Receive Date: 20180613
  Receipt Date: 20180613
  Transmission Date: 20180711
  Serious: Yes (Other)
  Sender: FDA-Public Use
  Company Number: IT-VIFOR (INTERNATIONAL) INC.-VIT-2018-05875

PATIENT
  Sex: Male
  Weight: 103 kg

DRUGS (9)
  1. CARDIOASPIRIN [Concomitant]
     Active Substance: ASPIRIN
     Indication: ISCHAEMIC CARDIOMYOPATHY
     Dates: start: 20101016
  2. PLAVIX [Concomitant]
     Active Substance: CLOPIDOGREL BISULFATE
     Indication: CARDIAC DISORDER
     Dates: start: 20101109, end: 20170914
  3. FOZNOL [Concomitant]
     Indication: CHRONIC KIDNEY DISEASE
     Dates: start: 20070714, end: 20180226
  4. ARANESP [Concomitant]
     Active Substance: DARBEPOETIN ALFA
     Indication: CHRONIC KIDNEY DISEASE
     Dates: start: 20171128
  5. DIBASE [Concomitant]
     Active Substance: CHOLECALCIFEROL
     Indication: CHRONIC KIDNEY DISEASE
     Dates: start: 20170916
  6. VELPHORO [Suspect]
     Active Substance: FERRIC OXYHYDROXIDE
     Indication: HYPERPHOSPHATAEMIA
     Route: 048
     Dates: start: 20180227, end: 2018
  7. ZEMPLAR [Concomitant]
     Active Substance: PARICALCITOL
     Indication: CHRONIC KIDNEY DISEASE
     Dates: start: 20170914, end: 20180226
  8. LUCEN [Concomitant]
     Active Substance: ESOMEPRAZOLE
     Indication: ANTIPLATELET THERAPY
     Dates: start: 20171130
  9. HEPARIN [Concomitant]
     Active Substance: HEPARIN SODIUM

REACTIONS (1)
  - Gastrointestinal haemorrhage [Unknown]

NARRATIVE: CASE EVENT DATE: 20180420
